FAERS Safety Report 12597219 (Version 1)
Quarter: 2016Q3

REPORT INFORMATION
  Report Type: Spontaneous
  Country: US (occurrence: US)
  Receive Date: 20160727
  Receipt Date: 20160727
  Transmission Date: 20161109
  Serious: Yes (Other)
  Sender: FDA-Public Use
  Company Number: US-ASTRAZENECA-2016SE78280

PATIENT
  Age: 682 Month
  Sex: Male
  Weight: 132.9 kg

DRUGS (28)
  1. SYMBICORT [Suspect]
     Active Substance: BUDESONIDE\FORMOTEROL FUMARATE DIHYDRATE
     Indication: CHRONIC OBSTRUCTIVE PULMONARY DISEASE
     Dosage: 160 4.5 MCG, TWO PUFFS TWO TIMES A DAY
     Route: 055
  2. PANTOPRAZOLE SODIUM. [Concomitant]
     Active Substance: PANTOPRAZOLE SODIUM
     Dosage: 40 MG, TABLET DELAYED RELEASE, 1 TABLET TWO TIMES A DAY
  3. LEVOTHYROXINE SODIUM. [Concomitant]
     Active Substance: LEVOTHYROXINE SODIUM
  4. IPRATROPIUM BROMIDE. [Concomitant]
     Active Substance: IPRATROPIUM BROMIDE
     Dosage: 0.06% SOLUTION TWO SPRAYS IN EACH NOSTRIL AS NEEDED THREE TIMES A DAY
     Route: 045
  5. MECLIZINE HCL [Concomitant]
     Active Substance: MECLIZINE HYDROCHLORIDE
  6. ASPIRIN. [Concomitant]
     Active Substance: ASPIRIN
  7. NEURONTIN [Suspect]
     Active Substance: GABAPENTIN
     Route: 048
  8. TRAMADOL HCL [Concomitant]
     Active Substance: TRAMADOL HYDROCHLORIDE
     Dosage: 50 MG AS REQUIRED EVERY 6 HRS
  9. PROAIR HFA [Concomitant]
     Active Substance: ALBUTEROL SULFATE
     Dosage: 108 (90 BASE)MCG/ACT AEROSOL SOLUTION 2 PUFFS AS NEEDED EVERY 4 HRS
  10. DIFLUCAN [Suspect]
     Active Substance: FLUCONAZOLE
     Route: 065
  11. RIZATRIPTAN BENZOATE. [Concomitant]
     Active Substance: RIZATRIPTAN BENZOATE
     Dosage: 10 MG TABLET AS NEEDED ONE TIME ONCE  A DAY
  12. LEVETIRACETAM. [Concomitant]
     Active Substance: LEVETIRACETAM
  13. BUPROPION HCL [Concomitant]
     Active Substance: BUPROPION HYDROCHLORIDE
     Dosage: 100 MG TABLET AT BREAKFAST AND 200 MG AT BREAKFAST AND 200 MG AT BEDTIME
  14. LYRICA [Suspect]
     Active Substance: PREGABALIN
     Indication: FIBROMYALGIA
     Route: 048
  15. NITROSTAT [Suspect]
     Active Substance: NITROGLYCERIN
     Dosage: 0.4MG AS REQUIRED
     Route: 060
  16. ACETAMINOPHEN\HYDROCODONE BITARTRATE [Concomitant]
     Active Substance: ACETAMINOPHEN\HYDROCODONE BITARTRATE
     Dosage: 10-325 MG, TABLET 1 TABLET AS NEEDED EVERY 6 HOURS
  17. WARFARIN SODIUM. [Concomitant]
     Active Substance: WARFARIN SODIUM
  18. LAMISIL [Concomitant]
     Active Substance: TERBINAFINE HYDROCHLORIDE
     Dosage: 1% CREAM 1 APPLICATION TO THE AFFECTED AREA TWO TIMES A DAY
  19. SYMBICORT [Suspect]
     Active Substance: BUDESONIDE\FORMOTEROL FUMARATE DIHYDRATE
     Indication: ASTHMA
     Dosage: 160 4.5 MCG, TWO PUFFS TWO TIMES A DAY
     Route: 055
  20. PLAVIX [Concomitant]
     Active Substance: CLOPIDOGREL BISULFATE
  21. PRIMIDONE. [Concomitant]
     Active Substance: PRIMIDONE
     Indication: TREMOR
  22. ATORVASTATIN CALCIUM. [Concomitant]
     Active Substance: ATORVASTATIN CALCIUM
  23. METOPROLOL SUCCINATE. [Suspect]
     Active Substance: METOPROLOL SUCCINATE
     Dosage: 50MG, 1/2 TABLET, DAILY
     Route: 048
  24. MONTELUKAST SODIUM. [Concomitant]
     Active Substance: MONTELUKAST SODIUM
     Dosage: 10 MG TABLET IN THE EVENING DAILY
  25. ALPRAZOLAM. [Concomitant]
     Active Substance: ALPRAZOLAM
  26. LOVENOX [Concomitant]
     Active Substance: ENOXAPARIN SODIUM
     Dosage: 120 MG/0.8 ML
     Route: 058
  27. ALBUTEROL SULFATE. [Concomitant]
     Active Substance: ALBUTEROL SULFATE
     Dosage: 5 MG/ ML, 0.5% NEBULIZATION SOLUTION 1 VIAL TWO TIMES A DAY
  28. PRILOSEC OTC [Suspect]
     Active Substance: OMEPRAZOLE MAGNESIUM
     Route: 048

REACTIONS (5)
  - Groin pain [Not Recovered/Not Resolved]
  - Candida infection [Recovered/Resolved]
  - Haematoma [Recovering/Resolving]
  - Fall [Recovering/Resolving]
  - Urticaria [Unknown]

NARRATIVE: CASE EVENT DATE: 201606
